FAERS Safety Report 12282536 (Version 2)
Quarter: 2016Q2

REPORT INFORMATION
  Report Type: Other
  Country: US (occurrence: US)
  Receive Date: 20160419
  Receipt Date: 20160504
  Transmission Date: 20160815
  Serious: Yes (Other)
  Sender: FDA-Public Use
  Company Number: US-SHIRE-US201604262

PATIENT
  Sex: Female

DRUGS (4)
  1. NATPARA (PARATHYROID HORMONE) [Suspect]
     Active Substance: PARATHYROID HORMONE
     Indication: AUTOIMMUNE HYPOTHYROIDISM
     Dosage: 50 MG, UNK
     Route: 065
     Dates: start: 2015
  2. ROCALTROL [Concomitant]
     Active Substance: CALCITRIOL
     Indication: PRODUCT USED FOR UNKNOWN INDICATION
     Dosage: UNK, UNKNOWN
     Route: 065
  3. NATPARA (PARATHYROID HORMONE) [Suspect]
     Active Substance: PARATHYROID HORMONE
     Dosage: 25 MG, UNKNOWN
     Route: 058
     Dates: start: 2015, end: 201512
  4. ROCALTROL [Concomitant]
     Active Substance: CALCITRIOL
     Dosage: 2 DF, UNK
     Route: 048
     Dates: start: 2015

REACTIONS (19)
  - Confusional state [Unknown]
  - Tremor [Unknown]
  - Flatulence [Unknown]
  - Asthenia [Unknown]
  - Suicidal ideation [Recovering/Resolving]
  - Depression [Recovering/Resolving]
  - Mood swings [Unknown]
  - Hyperhidrosis [Unknown]
  - Fatigue [Unknown]
  - Blood calcium increased [Unknown]
  - Tetany [Unknown]
  - Dyskinesia [Unknown]
  - Autoscopy [Unknown]
  - Muscular weakness [Unknown]
  - Feeling hot [Unknown]
  - Choking [Unknown]
  - Nervousness [Unknown]
  - Ill-defined disorder [Unknown]
  - Muscle spasms [Unknown]

NARRATIVE: CASE EVENT DATE: 2015
